FAERS Safety Report 4802614-3 (Version None)
Quarter: 2005Q4

REPORT INFORMATION
  Report Type: 
  Country: None (occurrence: None)
  Receive Date: 20051014
  Receipt Date: 20050314
  Transmission Date: 20060501
  Serious: Yes (Other)
  Sender: FDA-Public Use
  Company Number: 2005045465

PATIENT
  Age: 51 Year
  Sex: Female
  Weight: 48.9885 kg

DRUGS (2)
  1. NEURONTIN [Suspect]
     Indication: SLEEP DISORDER
     Dosage: 100 MG (100 MG, 1 IN 1 D), ORAL
     Route: 048
     Dates: start: 20041001, end: 20040101
  2. ALL OTHER THERAPEUTIC PRODUCTS (ALL OTHER THERAPEUTIC PRODUCTS) [Suspect]
     Indication: INFECTION
     Dates: start: 20041001, end: 20040101

REACTIONS (3)
  - GASTRIC DISORDER [None]
  - HAEMATEMESIS [None]
  - ULCER [None]
